FAERS Safety Report 11294948 (Version 1)
Quarter: 2015Q3

REPORT INFORMATION
  Report Type: Spontaneous
  Country: US (occurrence: None)
  Receive Date: 20150722
  Receipt Date: 20150722
  Transmission Date: 20151125
  Serious: No
  Sender: FDA-Public Use
  Company Number: None

PATIENT
  Age: 52 Year
  Sex: Female
  Weight: 49.9 kg

DRUGS (3)
  1. LUNESTA [Concomitant]
     Active Substance: ESZOPICLONE
  2. BELSOMRA [Suspect]
     Active Substance: SUVOREXANT
     Indication: SLEEP DISORDER
     Route: 048
  3. ATIVAN [Concomitant]
     Active Substance: LORAZEPAM

REACTIONS (6)
  - Decreased activity [None]
  - Somnambulism [None]
  - Restlessness [None]
  - Feeling abnormal [None]
  - Abnormal dreams [None]
  - Hallucination [None]

NARRATIVE: CASE EVENT DATE: 20150718
